FAERS Safety Report 15185352 (Version 1)
Quarter: 2018Q3

REPORT INFORMATION
  Report Type: Report from Study
  Country: DE (occurrence: DE)
  Receive Date: 20180723
  Receipt Date: 20180723
  Transmission Date: 20181010
  Serious: Yes (Hospitalization, Other)
  Sender: FDA-Public Use
  Company Number: DE-SHIRE-DE201826187

PATIENT

DRUGS (4)
  1. FEIBA NF [Suspect]
     Active Substance: ANTI-INHIBITOR COAGULANT COMPLEX
     Dosage: UNK UNK, AS REQ^D
     Route: 042
     Dates: start: 20180528
  2. ADVATE [Suspect]
     Active Substance: ANTIHEMOPHILIC FACTOR, HUMAN RECOMBINANT
     Indication: FACTOR VIII DEFICIENCY
     Dosage: 500 (UNIT UNKNOWN), EVERY 2 DAYS
     Route: 042
     Dates: start: 20160926, end: 20170410
  3. FEIBA NF [Suspect]
     Active Substance: ANTI-INHIBITOR COAGULANT COMPLEX
     Indication: FACTOR VIII DEFICIENCY
     Dosage: 1000 (UNKNOWN UNIT), 2X/DAY:BID
     Route: 042
     Dates: start: 20170410, end: 20180527
  4. FEIBA NF [Suspect]
     Active Substance: ANTI-INHIBITOR COAGULANT COMPLEX
     Dosage: 500 IU, 2X/DAY:BID
     Route: 065
     Dates: start: 20180616

REACTIONS (3)
  - Streptococcal infection [Recovered/Resolved]
  - Drug dose omission [Recovered/Resolved]
  - Anti factor VIII antibody increased [Unknown]

NARRATIVE: CASE EVENT DATE: 20180527
